FAERS Safety Report 11137952 (Version 1)
Quarter: 2015Q2

REPORT INFORMATION
  Report Type: Spontaneous
  Country: DE (occurrence: DE)
  Receive Date: 20150526
  Receipt Date: 20150526
  Transmission Date: 20150821
  Serious: Yes (Other)
  Sender: FDA-Public Use
  Company Number: PHHY2014DE105296

PATIENT
  Age: 87 Year
  Sex: Male

DRUGS (3)
  1. ULTIBRO BREEZHALER [Suspect]
     Active Substance: GLYCOPYRRONIUM\INDACATEROL
     Indication: ASTHMA
     Route: 065
     Dates: start: 20140818
  2. ULTIBRO BREEZHALER [Suspect]
     Active Substance: GLYCOPYRRONIUM\INDACATEROL
     Indication: OFF LABEL USE
  3. MIFLONIDE [Suspect]
     Active Substance: BUDESONIDE
     Indication: PRODUCT USED FOR UNKNOWN INDICATION
     Route: 065
     Dates: start: 20140818

REACTIONS (3)
  - Urinary retention [Unknown]
  - Pain [Unknown]
  - Gastrointestinal motility disorder [Recovered/Resolved]

NARRATIVE: CASE EVENT DATE: 20140819
